FAERS Safety Report 7690099-1 (Version None)
Quarter: 2011Q3

REPORT INFORMATION
  Report Type: 
  Country: None (occurrence: None)
  Receive Date: 20110818
  Receipt Date: 20101202
  Transmission Date: 20111222
  Serious: No
  Sender: FDA-Public Use
  Company Number: US-BAYER-2010-008272

PATIENT
  Age: 29 Year
  Sex: Female

DRUGS (1)
  1. MIRENA [Suspect]
     Indication: CONTRACEPTION
     Dosage: 20 MCG/24HR, CONT
     Route: 015
     Dates: start: 20080601, end: 20101130

REACTIONS (4)
  - UTERINE PAIN [None]
  - MENSTRUAL DISORDER [None]
  - VAGINAL DISCHARGE [None]
  - UTERINE CYST [None]
